FAERS Safety Report 7836890 (Version 4)
Quarter: 2012Q4

REPORT INFORMATION
  Report Type: 
  Country: CA (occurrence: CA)
  Receive Date: 20110302
  Receipt Date: 20121106
  Transmission Date: 20130627
  Serious: Yes (Death, Hospitalization, Other)
  Sender: FDA-Public Use
  Company Number: PHHY2009CA42100

PATIENT
  Sex: Male

DRUGS (1)
  1. SANDOSTATIN LAR [Suspect]
     Indication: HEPATIC NEOPLASM MALIGNANT
     Dosage: 20 mg every 4 weeks
     Route: 030
     Dates: start: 20070327

REACTIONS (11)
  - Death [Fatal]
  - Blood pressure diastolic decreased [Unknown]
  - Weight decreased [Unknown]
  - Pyrexia [Unknown]
  - Blood urine present [Unknown]
  - Blood pressure increased [Unknown]
  - Painful defaecation [Unknown]
  - Pain [Unknown]
  - Gastrointestinal hypomotility [Unknown]
  - Abdominal distension [Unknown]
  - Heart rate decreased [Unknown]
